FAERS Safety Report 8769465 (Version 1)
Quarter: 2012Q4

REPORT INFORMATION
  Report Type: 
  Country: US (occurrence: US)
  Receive Date: 20120905
  Receipt Date: 20120905
  Transmission Date: 20130627
  Serious: No
  Sender: FDA-Public Use
  Company Number: US-ASTRAZENECA-2012SE60705

PATIENT
  Age: 25 Year
  Sex: Female

DRUGS (2)
  1. SYMBICORT [Suspect]
     Dosage: 160 PER 4.5
     Route: 055
  2. ALBUTEROL [Concomitant]

REACTIONS (4)
  - Oral mucosal erythema [Unknown]
  - Throat tightness [Unknown]
  - Drug hypersensitivity [Unknown]
  - Drug dose omission [Unknown]
